FAERS Safety Report 14681609 (Version 1)
Quarter: 2018Q1

REPORT INFORMATION
  Report Type: Spontaneous
  Country: US (occurrence: US)
  Receive Date: 20180326
  Receipt Date: 20180326
  Transmission Date: 20180509
  Serious: Yes (Hospitalization)
  Sender: FDA-Public Use
  Company Number: US-PFIZER INC-2018084093

PATIENT
  Age: 69 Year
  Sex: Female

DRUGS (2)
  1. IBRANCE [Suspect]
     Active Substance: PALBOCICLIB
     Dosage: 125 MG, DAILY
     Route: 048
  2. IBRANCE [Suspect]
     Active Substance: PALBOCICLIB
     Indication: BREAST CANCER FEMALE
     Dosage: 125 MG, CYCLIC (QD X 21 OFF X 7)
     Route: 048
     Dates: start: 20171127, end: 20171212

REACTIONS (2)
  - Cerebrovascular accident [Recovered/Resolved]
  - Memory impairment [Unknown]

NARRATIVE: CASE EVENT DATE: 20171207
